FAERS Safety Report 14689535 (Version 2)
Quarter: 2018Q2

REPORT INFORMATION
  Report Type: Spontaneous
  Country: IT (occurrence: IT)
  Receive Date: 20180328
  Receipt Date: 20180412
  Transmission Date: 20180711
  Serious: Yes (Hospitalization)
  Sender: FDA-Public Use
  Company Number: IT-PFIZER INC-2018125466

PATIENT
  Age: 63 Year
  Sex: Male

DRUGS (3)
  1. CARDIOASPIRIN [Concomitant]
     Active Substance: ASPIRIN
     Dosage: UNK
  2. PLAVIX [Concomitant]
     Active Substance: CLOPIDOGREL BISULFATE
     Dosage: UNK
  3. BOSULIF [Suspect]
     Active Substance: BOSUTINIB MONOHYDRATE
     Indication: CHRONIC MYELOID LEUKAEMIA
     Dosage: 300 MG, 1X/DAY
     Route: 048
     Dates: start: 20160808, end: 20180223

REACTIONS (3)
  - Anaemia [Recovered/Resolved]
  - Melaena [Recovered/Resolved]
  - Gastritis erosive [Recovered/Resolved]

NARRATIVE: CASE EVENT DATE: 20180119
